FAERS Safety Report 7879989-4 (Version None)
Quarter: 2011Q4

REPORT INFORMATION
  Report Type: 
  Country: None (occurrence: None)
  Receive Date: 20111101
  Receipt Date: 20111028
  Transmission Date: 20120403
  Serious: Yes (Hospitalization, Other)
  Sender: FDA-Public Use
  Company Number: DE-ABBOTT-11P-062-0701681-00

PATIENT
  Sex: Male
  Weight: 77 kg

DRUGS (4)
  1. METHOTREXATE SODIUM [Concomitant]
     Dates: end: 20110122
  2. HUMIRA [Suspect]
     Indication: ANTI-CYCLIC CITRULLINATED PEPTIDE ANTIBODY
  3. HUMIRA [Suspect]
     Indication: RHEUMATOID ARTHRITIS
     Dates: start: 20100630
  4. METHOTREXATE SODIUM [Concomitant]
     Indication: RHEUMATOID ARTHRITIS
     Dates: start: 20070101

REACTIONS (9)
  - VOMITING [None]
  - LEUKOPENIA [None]
  - BUNDLE BRANCH BLOCK RIGHT [None]
  - CHILLS [None]
  - PYREXIA [None]
  - HEPATIC ENZYME INCREASED [None]
  - COUGH [None]
  - BLOOD CREATINE PHOSPHOKINASE INCREASED [None]
  - LOBAR PNEUMONIA [None]
